FAERS Safety Report 18270238 (Version 1)
Quarter: 2020Q3

REPORT INFORMATION
  Report Type: Spontaneous
  Country: DE (occurrence: DE)
  Receive Date: 20200916
  Receipt Date: 20200916
  Transmission Date: 20201103
  Serious: Yes (Other)
  Sender: FDA-Public Use
  Company Number: DE-AUROBINDO-AUR-APL-2020-047872

PATIENT
  Age: 17 Year
  Sex: Male

DRUGS (9)
  1. PERAMPANEL [Concomitant]
     Active Substance: PERAMPANEL
     Indication: PRODUCT USED FOR UNKNOWN INDICATION
     Dosage: 8 MILLIGRAM, DAILY
     Route: 065
  2. PERAMPANEL [Concomitant]
     Active Substance: PERAMPANEL
     Dosage: 6 MILLIGRAM, DAILY
     Route: 065
  3. BRIVIACT [Suspect]
     Active Substance: BRIVARACETAM
     Dosage: 250 MILLIGRAM, DAILY
     Route: 065
  4. VIMPAT [Suspect]
     Active Substance: LACOSAMIDE
     Indication: PRODUCT USED FOR UNKNOWN INDICATION
     Dosage: 400 MILLIGRAM, DAILY
     Route: 065
  5. LEVETIRACETAM. [Suspect]
     Active Substance: LEVETIRACETAM
     Indication: PRODUCT USED FOR UNKNOWN INDICATION
     Dosage: 400 MILLIGRAM, DAILY
     Route: 065
     Dates: start: 2017
  6. BRIVIACT [Suspect]
     Active Substance: BRIVARACETAM
     Indication: PRODUCT USED FOR UNKNOWN INDICATION
     Dosage: 100 MILLIGRAM, DAILY
     Route: 065
  7. BRIVIACT [Suspect]
     Active Substance: BRIVARACETAM
     Dosage: 300 MILLIGRAM, DAILY
     Route: 065
  8. VIMPAT [Suspect]
     Active Substance: LACOSAMIDE
     Dosage: 700 MILLIGRAM, DAILY
     Route: 065
     Dates: start: 2017
  9. VIMPAT [Suspect]
     Active Substance: LACOSAMIDE
     Dosage: 500 MILLIGRAM, DAILY
     Route: 065

REACTIONS (6)
  - Fatigue [Unknown]
  - Off label use [Unknown]
  - Partial seizures [Not Recovered/Not Resolved]
  - Dizziness [Unknown]
  - Intentional product use issue [Unknown]
  - Overdose [Unknown]

NARRATIVE: CASE EVENT DATE: 2017
